FAERS Safety Report 15612952 (Version 9)
Quarter: 2022Q1

REPORT INFORMATION
  Report Type: Report from Study
  Country: GB (occurrence: GB)
  Receive Date: 20181113
  Receipt Date: 20220126
  Transmission Date: 20220423
  Serious: Yes (Hospitalization, Other)
  Sender: FDA-Public Use
  Company Number: GB-ROCHE-1641219

PATIENT
  Age: 72 Year
  Sex: Female

DRUGS (54)
  1. DOCETAXEL [Suspect]
     Active Substance: DOCETAXEL
     Indication: Breast cancer metastatic
     Dosage: 92 MG, EVERY 3 WEEKS
     Route: 042
     Dates: start: 20150514, end: 20150715
  2. DOCETAXEL [Suspect]
     Active Substance: DOCETAXEL
     Dosage: 86 MG, EVERY 3 WEEKS (MOST RECENT DOSE ON 18/SEP/2015)
     Route: 042
     Dates: start: 20150828, end: 20150918
  3. AROMASIN [Suspect]
     Active Substance: EXEMESTANE
     Indication: Breast cancer metastatic
     Dosage: 25 MG, DAILY
     Route: 048
     Dates: start: 20151013, end: 201604
  4. TRASTUZUMAB [Suspect]
     Active Substance: TRASTUZUMAB
     Indication: Breast cancer metastatic
     Dosage: 400 MG CYCLIC, LOADING DOSE
     Route: 041
     Dates: start: 20150513, end: 20150513
  5. TRASTUZUMAB [Suspect]
     Active Substance: TRASTUZUMAB
     Dosage: 300 MG, EVERY 3 WEEKS
     Route: 042
     Dates: start: 20150603, end: 20150828
  6. TRASTUZUMAB [Suspect]
     Active Substance: TRASTUZUMAB
     Dosage: 275 MG, EVERY 3 WEEKS
     Route: 042
     Dates: start: 20150818, end: 20151211
  7. TRASTUZUMAB [Suspect]
     Active Substance: TRASTUZUMAB
     Dosage: 300 MG, EVERY 3 WEEKS (LOADING DOSE)
     Route: 042
     Dates: start: 20160108, end: 20160405
  8. TRASTUZUMAB [Suspect]
     Active Substance: TRASTUZUMAB
     Dosage: 160 MG, EVERY 3 WEEKS
     Route: 042
     Dates: start: 20170510, end: 20180808
  9. TRASTUZUMAB [Suspect]
     Active Substance: TRASTUZUMAB
     Dosage: 184 MG, EVERY 3 WEEKS
     Dates: start: 20160426, end: 20160720
  10. TRASTUZUMAB [Suspect]
     Active Substance: TRASTUZUMAB
     Dosage: 148 MG, EVERY 3 WEEKS
     Dates: start: 20160810, end: 20170419
  11. TRASTUZUMAB [Suspect]
     Active Substance: TRASTUZUMAB
     Dosage: 300 MILLIGRAM, 3XW// STAT DATE: 03-JUN-2015
     Dates: start: 20150603, end: 20150804
  12. TRASTUZUMAB [Suspect]
     Active Substance: TRASTUZUMAB
     Dosage: 275 MILLIGRAM, Q3W / START DATE:18-SEP-2015
     Dates: start: 20150918, end: 20151211
  13. TRASTUZUMAB [Suspect]
     Active Substance: TRASTUZUMAB
     Dosage: 300 UNK
     Route: 042
  14. PERTUZUMAB [Suspect]
     Active Substance: PERTUZUMAB
     Indication: Breast cancer metastatic
     Dosage: UNK
     Route: 042
  15. ADO-TRASTUZUMAB EMTANSINE [Suspect]
     Active Substance: ADO-TRASTUZUMAB EMTANSINE
     Indication: Breast cancer metastatic
     Dosage: 184 MG, EVERY 3 WEEKS
     Route: 042
     Dates: start: 20160426, end: 20160720
  16. ADO-TRASTUZUMAB EMTANSINE [Suspect]
     Active Substance: ADO-TRASTUZUMAB EMTANSINE
     Dosage: 148 MG, EVERY 3 WEEKS
     Route: 042
     Dates: start: 20160810, end: 20170419
  17. ADO-TRASTUZUMAB EMTANSINE [Suspect]
     Active Substance: ADO-TRASTUZUMAB EMTANSINE
     Dosage: 160 MG, EVERY 3 WEEKS
     Route: 042
     Dates: start: 20170510, end: 20180808
  18. ADO-TRASTUZUMAB EMTANSINE [Suspect]
     Active Substance: ADO-TRASTUZUMAB EMTANSINE
     Dosage: 148 MG, EVERY 3 WEEKS
     Route: 042
     Dates: start: 20160424, end: 20160720
  19. NERATINIB [Suspect]
     Active Substance: NERATINIB
     Indication: HER2 positive breast cancer
     Dosage: 240 MG, 1X/DAY
     Route: 048
     Dates: start: 20180825, end: 201811
  20. AMOXICILLIN [Concomitant]
     Active Substance: AMOXICILLIN
     Indication: Infection
     Dosage: 500 MG, DAILY
     Route: 048
     Dates: start: 20150804, end: 20150810
  21. RANITIDINE [Concomitant]
     Active Substance: RANITIDINE
     Dosage: 150 MG, DAILY
     Route: 048
     Dates: start: 20150805, end: 20150807
  22. RANITIDINE [Concomitant]
     Active Substance: RANITIDINE
     Dosage: 150 MG, DAILY
     Route: 048
     Dates: start: 20150825, end: 20150827
  23. DOMPERIDONE [Concomitant]
     Active Substance: DOMPERIDONE
     Indication: Prophylaxis
     Dosage: 10 MG, DAILY
     Route: 048
     Dates: start: 20150803, end: 20150805
  24. DEXAMETHASONE [Concomitant]
     Active Substance: DEXAMETHASONE
     Dosage: 5 ML DAILY, LIQUID
     Route: 047
     Dates: start: 20150714, end: 20150923
  25. CETIRIZINE [Concomitant]
     Active Substance: CETIRIZINE HYDROCHLORIDE
     Dosage: 10 MG, UNK
     Route: 048
     Dates: start: 20150805, end: 20150807
  26. CETIRIZINE [Concomitant]
     Active Substance: CETIRIZINE HYDROCHLORIDE
     Dosage: 10 MG, UNK
     Route: 048
     Dates: start: 20150825, end: 20150827
  27. CETIRIZINE [Concomitant]
     Active Substance: CETIRIZINE HYDROCHLORIDE
     Dosage: 10 MG, UNK
     Route: 048
     Dates: end: 20190406
  28. DEXAMETHASONE [Concomitant]
     Active Substance: DEXAMETHASONE
     Dosage: 2 MG, DAILY THREE DAYS PRIOR TO CHEMOTHERAPY
     Route: 048
     Dates: start: 20150803, end: 20150805
  29. 3M CAVILON ANTIFUNGAL [Concomitant]
     Active Substance: MICONAZOLE NITRATE
     Indication: Prophylaxis
     Dosage: 92 G, UNK
     Route: 061
     Dates: start: 20150804
  30. CLAVULANIC ACID [Concomitant]
     Active Substance: CLAVULANIC ACID
     Indication: Infection
     Dosage: 125 MG, DAILY
     Route: 048
     Dates: start: 20150804, end: 20150810
  31. MIDAZOLAM [Concomitant]
     Active Substance: MIDAZOLAM
     Dosage: UNK
     Route: 058
     Dates: start: 201901, end: 20190406
  32. LANSOPRAZOLE [Concomitant]
     Active Substance: LANSOPRAZOLE
     Indication: Abdominal discomfort
     Dosage: 30 MG, UNK
     Route: 048
     Dates: start: 20181002, end: 201908
  33. GLYCOPYRROLATE [Concomitant]
     Active Substance: GLYCOPYRROLATE
     Dosage: 200 UG, AS NEEDED
     Route: 058
     Dates: start: 201901, end: 20190406
  34. CYCLIZINE [Concomitant]
     Active Substance: CYCLIZINE
     Dosage: UNK
     Route: 058
     Dates: start: 201901, end: 20190406
  35. OMEPRAZOLE [Concomitant]
     Active Substance: OMEPRAZOLE
     Indication: Prophylaxis
     Dosage: 20 MG, 1X/DAY
     Route: 048
     Dates: start: 201901, end: 20190406
  36. OXYCODONE [Concomitant]
     Active Substance: OXYCODONE
     Dosage: 1.25 MG, UNK
     Route: 058
     Dates: start: 201901, end: 20190406
  37. AMOXICILLIN\CLAVULANATE POTASSIUM [Concomitant]
     Active Substance: AMOXICILLIN\CLAVULANATE POTASSIUM
     Dosage: 625 MG, UNK
     Route: 048
     Dates: start: 20150804, end: 20150810
  38. AMOXICILLIN\CLAVULANATE POTASSIUM [Concomitant]
     Active Substance: AMOXICILLIN\CLAVULANATE POTASSIUM
     Dosage: 625 MG, UNK
     Route: 048
     Dates: start: 20180923, end: 20180930
  39. BUDESONIDE [Concomitant]
     Active Substance: BUDESONIDE
     Dosage: 9 MG, UNK
     Route: 048
     Dates: start: 20181025, end: 20181114
  40. LACTULOSE [Concomitant]
     Active Substance: LACTULOSE
     Dosage: UNK, 1X/DAY
     Route: 048
     Dates: start: 201901, end: 20190406
  41. POTASSIUM CHLORIDE [Concomitant]
     Active Substance: POTASSIUM CHLORIDE
     Dosage: 2 DF, 1X/DAY
     Route: 048
     Dates: start: 20181120, end: 20181125
  42. LOPERAMIDE [Concomitant]
     Active Substance: LOPERAMIDE
     Dosage: 2 MG, UNK
     Route: 048
     Dates: start: 20181025, end: 20190406
  43. LEVETIRACETAM [Concomitant]
     Active Substance: LEVETIRACETAM
     Dosage: 500 MG, 2X/DAY
     Route: 048
     Dates: start: 20180918, end: 20190406
  44. CALAMINE [Concomitant]
     Active Substance: CALAMINE\FERRIC OXIDE RED\ZINC OXIDE
     Dosage: UNK
     Route: 061
     Dates: start: 201508, end: 201601
  45. CHLORPHENIRAMINE [Concomitant]
     Active Substance: CHLORPHENIRAMINE
     Indication: Pruritus
     Dosage: 10 MG
     Route: 042
     Dates: start: 20150807, end: 20150807
  46. HYDROCORTISONE [Concomitant]
     Active Substance: HYDROCORTISONE
     Indication: Pruritus
     Dosage: 100 MG
     Route: 042
     Dates: start: 20150807, end: 20150807
  47. HYPROMELLOSES [Concomitant]
     Active Substance: HYPROMELLOSES
     Indication: Lacrimation increased
     Dosage: 3 DF, 1X/DAY
     Route: 047
     Dates: end: 20160401
  48. HYPROMELLOSES [Concomitant]
     Active Substance: HYPROMELLOSES
     Dosage: UNK, 0.33
     Route: 047
     Dates: end: 20160401
  49. LORAZEPAM [Concomitant]
     Active Substance: LORAZEPAM
     Indication: Panic attack
     Dosage: 2 MG
     Route: 042
     Dates: start: 20180917, end: 20180918
  50. LORAZEPAM [Concomitant]
     Active Substance: LORAZEPAM
     Indication: Insomnia
     Dosage: 0.5 MG
     Route: 048
     Dates: start: 20160830, end: 20190406
  51. SENNOSIDE B [Concomitant]
     Active Substance: SENNOSIDE B
     Dosage: 30 MG, 1X/DAY
     Route: 048
     Dates: start: 20160809, end: 20190406
  52. SENNOSIDE B [Concomitant]
     Active Substance: SENNOSIDE B
     Dosage: 15 MG
     Route: 048
     Dates: start: 20160809, end: 20190406
  53. TICARCILLIN [Concomitant]
     Active Substance: TICARCILLIN
     Indication: Infection
     Dosage: 125 MG, 1X/DAY
     Dates: start: 20150804, end: 20150810
  54. POTASSIUM BICARBONATE\POTASSIUM CHLORIDE [Concomitant]
     Active Substance: POTASSIUM BICARBONATE\POTASSIUM CHLORIDE
     Dosage: UNK, 2X/DAY
     Dates: start: 20181120, end: 20181125

REACTIONS (22)
  - Nail dystrophy [Recovered/Resolved]
  - Lacrimation increased [Recovered/Resolved]
  - Neuropathy peripheral [Recovered/Resolved]
  - Fatigue [Recovered/Resolved]
  - Anaphylactic reaction [Recovered/Resolved]
  - Axillary pain [Recovered/Resolved]
  - Catheter site haemorrhage [Recovered/Resolved]
  - Ejection fraction decreased [Unknown]
  - Panic attack [Not Recovered/Not Resolved]
  - Pruritus [Recovered/Resolved]
  - Dry skin [Recovered/Resolved]
  - Chest discomfort [Recovered/Resolved]
  - Insomnia [Not Recovered/Not Resolved]
  - Constipation [Not Recovered/Not Resolved]
  - Appendicitis [Recovered/Resolved]
  - Hypokalaemia [Recovered/Resolved]
  - Hypokalaemia [Recovered/Resolved]
  - Seizure [Recovered/Resolved]
  - Dementia [Recovered/Resolved]
  - Diarrhoea [Recovered/Resolved]
  - Amnesia [Not Recovered/Not Resolved]
  - Memory impairment [Recovered/Resolved]

NARRATIVE: CASE EVENT DATE: 20150716
